FAERS Safety Report 7268145-9 (Version None)
Quarter: 2011Q1

REPORT INFORMATION
  Report Type: 
  Country: None (occurrence: None)
  Receive Date: 20110124
  Receipt Date: 20110112
  Transmission Date: 20110831
  Serious: Yes (Death, Other)
  Sender: FDA-Public Use
  Company Number: GB-ACCORD-007829

PATIENT
  Age: 81 Year
  Sex: Male
  Weight: 70 kg

DRUGS (5)
  1. CLARITHROMYCIN [Concomitant]
  2. CLOPIDOGREL BISULFATE [Concomitant]
  3. BISOPROLOL FUMARATE [Concomitant]
  4. SIMVASTATIN [Suspect]
     Indication: MYOCARDIAL ISCHAEMIA
     Dosage: 40.00-MG / ORAL
     Route: 048
  5. OMEPRAZOLE [Concomitant]

REACTIONS (7)
  - CORONARY ARTERY DISEASE [None]
  - GASTRITIS HAEMORRHAGIC [None]
  - RHABDOMYOLYSIS [None]
  - RENAL FAILURE ACUTE [None]
  - DIALYSIS [None]
  - BRONCHOPNEUMONIA [None]
  - HELICOBACTER TEST POSITIVE [None]
